FAERS Safety Report 17110311 (Version 1)
Quarter: 2019Q4

REPORT INFORMATION
  Report Type: Spontaneous
  Country: FR (occurrence: FR)
  Receive Date: 20191204
  Receipt Date: 20191204
  Transmission Date: 20200122
  Serious: Yes (Hospitalization)
  Sender: FDA-Public Use
  Company Number: FR-PFIZER INC-2019519089

PATIENT
  Age: 43 Year
  Sex: Female

DRUGS (6)
  1. PARACETAMOL [Suspect]
     Active Substance: ACETAMINOPHEN
     Dosage: IN ONE TAKE
  2. EPITOMAX [Suspect]
     Active Substance: TOPIRAMATE
     Dosage: 8 TABLETS OF 50 MG PER DAY
     Route: 048
  3. ALPRAZOLAM. [Suspect]
     Active Substance: ALPRAZOLAM
     Dosage: 3 MG, 1X/DAY
     Route: 048
  4. TRAMADOL HCL [Suspect]
     Active Substance: TRAMADOL HYDROCHLORIDE
     Dosage: UP TO 24 CAPSULES OF 50 MG IN ONE INTAKE PER DAY
     Route: 048
  5. FENTANYL. [Suspect]
     Active Substance: FENTANYL
     Dosage: 100 UG, UNK
     Route: 062
  6. IBUPROFEN. [Suspect]
     Active Substance: IBUPROFEN
     Dosage: UP TO 6 TABLETS OF 200MG IN ONE TAKE
     Route: 048

REACTIONS (1)
  - Drug dependence [Not Recovered/Not Resolved]
